FAERS Safety Report 8782920 (Version 1)
Quarter: 2012Q4

REPORT INFORMATION
  Report Type: 
  Country: GB (occurrence: GB)
  Receive Date: 20120914
  Receipt Date: 20120914
  Transmission Date: 20130627
  Serious: Yes (Life-Threatening)
  Sender: FDA-Public Use
  Company Number: GB-TEVA-357725ISR

PATIENT
  Age: 60 Year
  Sex: Male

DRUGS (6)
  1. VALPROIC ACID [Suspect]
     Indication: CONVULSION
     Route: 048
     Dates: start: 20120615
  2. CLOBAZAM [Suspect]
     Indication: CONVULSION
     Route: 048
     Dates: start: 20120822
  3. EPILIM CHRONOSPHERE [Concomitant]
  4. LOPERAMIDE [Concomitant]
  5. MIDAZOLAM [Concomitant]
  6. OLANZAPINE [Concomitant]

REACTIONS (1)
  - Ventricular tachycardia [Recovered/Resolved]
